FAERS Safety Report 22697103 (Version 4)
Quarter: 2025Q4

REPORT INFORMATION
  Report Type: Report from Study
  Country: US (occurrence: None)
  Receive Date: 20230712
  Receipt Date: 20251031
  Transmission Date: 20260117
  Serious: No
  Sender: INCYTE
  Company Number: US-INCYTE CORPORATION-2023IN005841

PATIENT
  Age: 76 Year

DRUGS (2)
  1. JAKAFI [Suspect]
     Active Substance: RUXOLITINIB
     Indication: Myelofibrosis
     Dosage: 20 MILLIGRAM, BID (TAKE 1 TABLET BY MOUTH 2 TIMES A DAY FOR 30 DAYS)
     Route: 065
  2. JAKAFI [Suspect]
     Active Substance: RUXOLITINIB
     Dosage: 5 MILLIGRAM, BID
     Route: 065

REACTIONS (3)
  - Platelet count abnormal [Unknown]
  - White blood cell count abnormal [Unknown]
  - Product availability issue [Unknown]
